FAERS Safety Report 12178904 (Version 2)
Quarter: 2016Q1

REPORT INFORMATION
  Report Type: Spontaneous
  Country: US (occurrence: US)
  Receive Date: 20160315
  Receipt Date: 20160330
  Transmission Date: 20160526
  Serious: Yes (Hospitalization)
  Sender: FDA-Public Use
  Company Number: PHEH2016US005399

PATIENT
  Sex: Male

DRUGS (1)
  1. COARTEM [Suspect]
     Active Substance: ARTEMETHER\LUMEFANTRINE
     Indication: MALARIA PROPHYLAXIS
     Route: 065

REACTIONS (21)
  - Urine output decreased [Unknown]
  - Asthenia [Unknown]
  - Vomiting [Unknown]
  - Scab [Not Recovered/Not Resolved]
  - Malaise [Unknown]
  - Pyrexia [Unknown]
  - Chills [Unknown]
  - Blister [Not Recovered/Not Resolved]
  - Dry mouth [Unknown]
  - Rash [Not Recovered/Not Resolved]
  - Chromaturia [Unknown]
  - Fatigue [Unknown]
  - Lacrimation increased [Unknown]
  - Dyspnoea [Unknown]
  - Decreased appetite [Unknown]
  - Abdominal pain upper [Unknown]
  - Breath sounds abnormal [Unknown]
  - Aphonia [Unknown]
  - Nausea [Unknown]
  - Feeling cold [Unknown]
  - Rash generalised [Not Recovered/Not Resolved]

NARRATIVE: CASE EVENT DATE: 20160229
